FAERS Safety Report 4281392-3 (Version None)
Quarter: 2004Q1

REPORT INFORMATION
  Report Type: 
  Country: None (occurrence: None)
  Receive Date: 20040109
  Receipt Date: 20030620
  Transmission Date: 20041129
  Serious: No
  Sender: FDA-Public Use
  Company Number: US041327

PATIENT
  Sex: 0

DRUGS (1)
  1. KINERET [Suspect]
     Indication: DRUG USE FOR UNKNOWN INDICATION
     Dates: start: 20030604

REACTIONS (6)
  - DIZZINESS [None]
  - ERYTHEMA [None]
  - EYE REDNESS [None]
  - EYE SWELLING [None]
  - FEELING HOT [None]
  - RASH [None]
